FAERS Safety Report 9490347 (Version 6)
Quarter: 2014Q1

REPORT INFORMATION
  Report Type: Report from Study
  Country: BR (occurrence: BR)
  Receive Date: 20130830
  Receipt Date: 20140131
  Transmission Date: 20141002
  Serious: Yes (Other)
  Sender: FDA-Public Use
  Company Number: BR-ROCHE-1267273

PATIENT
  Sex: Female
  Weight: 97 kg

DRUGS (3)
  1. RIBAVIRIN [Suspect]
     Indication: HEPATITIS C
     Route: 065
     Dates: start: 20100606, end: 20111008
  2. INTERFERON ALFA-2B [Suspect]
     Indication: HEPATITIS C
     Route: 065
     Dates: start: 20100606, end: 20111008
  3. VITAMIN C [Concomitant]

REACTIONS (5)
  - Drug ineffective [Unknown]
  - Immunodeficiency [Recovered/Resolved]
  - Hypertension [Unknown]
  - Headache [Recovered/Resolved]
  - Myalgia [Recovered/Resolved]
